FAERS Safety Report 6311643-2 (Version None)
Quarter: 2009Q3

REPORT INFORMATION
  Report Type: 
  Country: None (occurrence: None)
  Receive Date: 20090817
  Receipt Date: 20090811
  Transmission Date: 20100115
  Serious: Yes (Hospitalization)
  Sender: FDA-Public Use
  Company Number: B0588176A

PATIENT
  Age: 89 Year
  Sex: Female

DRUGS (7)
  1. AUGMENTIN '125' [Suspect]
     Indication: DRUG USE FOR UNKNOWN INDICATION
     Route: 048
     Dates: start: 20090624, end: 20090701
  2. AMLOR [Suspect]
     Indication: DRUG USE FOR UNKNOWN INDICATION
     Dosage: 1UNIT PER DAY
     Route: 048
     Dates: start: 20090621, end: 20090704
  3. NEXIUM [Suspect]
     Indication: DRUG USE FOR UNKNOWN INDICATION
     Dosage: 1UNIT PER DAY
     Route: 048
     Dates: start: 20090630, end: 20090706
  4. RAMIPRIL [Concomitant]
     Dates: start: 20090704, end: 20090706
  5. PREVISCAN [Concomitant]
     Route: 065
  6. ACEBUTOLOL [Concomitant]
     Route: 065
  7. DIGOXIN [Concomitant]
     Route: 065

REACTIONS (5)
  - PRURITUS [None]
  - RASH ERYTHEMATOUS [None]
  - RASH MACULO-PAPULAR [None]
  - SKIN LESION [None]
  - SKIN PLAQUE [None]
